FAERS Safety Report 8373708-3 (Version None)
Quarter: 2012Q2

REPORT INFORMATION
  Report Type: 
  Country: None (occurrence: None)
  Receive Date: 20120517
  Receipt Date: 20120503
  Transmission Date: 20120825
  Serious: Yes (Other)
  Sender: FDA-Public Use
  Company Number: NGX_00985_2012

PATIENT
  Sex: Female

DRUGS (3)
  1. QUTENZA [Suspect]
     Indication: NEURALGIA
     Dosage: (1 DF, [PATCH] TOPICAL)
     Route: 061
     Dates: start: 20120301, end: 20120301
  2. PREGABALIN [Concomitant]
  3. TILIDINE [Concomitant]

REACTIONS (4)
  - APPLICATION SITE SWELLING [None]
  - MOVEMENT DISORDER [None]
  - APPLICATION SITE PAIN [None]
  - APPLICATION SITE ERYTHEMA [None]
